FAERS Safety Report 4299637-2 (Version None)
Quarter: 2004Q1

REPORT INFORMATION
  Report Type: 
  Country: None (occurrence: None)
  Receive Date: 20040219
  Receipt Date: 20031003
  Transmission Date: 20041129
  Serious: Yes (Hospitalization)
  Sender: FDA-Public Use
  Company Number: PHBS2003JP10869

PATIENT
  Age: 65 Year
  Sex: Male
  Weight: 56 kg

DRUGS (7)
  1. ALESION [Concomitant]
     Dosage: 20 MG/DAY
     Route: 048
     Dates: start: 20030901, end: 20030907
  2. TEGRETOL [Suspect]
     Indication: TRIGEMINAL NEURALGIA
     Dosage: 400 MG/DAY
     Route: 048
     Dates: start: 20030521, end: 20030708
  3. TEGRETOL [Suspect]
     Dosage: 600 MG/DAY
     Route: 048
     Dates: start: 20030709, end: 20030930
  4. AZULENE-GLUTAMINE [Concomitant]
     Dosage: 2 G/D
     Route: 048
     Dates: start: 20030414, end: 20030930
  5. ADALAT [Concomitant]
     Dosage: 40 MG/D
     Route: 048
     Dates: start: 20030327, end: 20030930
  6. ETIZOLAM [Concomitant]
     Dosage: 1.5 MG/D
     Route: 048
     Dates: start: 20030416, end: 20030930
  7. NEUROTROPIN [Concomitant]
     Dosage: 4 TABLETS/DAY
     Route: 048
     Dates: start: 20030801, end: 20030930

REACTIONS (4)
  - ANOREXIA [None]
  - APLASTIC ANAEMIA [None]
  - CEREBRAL INFARCTION [None]
  - DEPRESSED LEVEL OF CONSCIOUSNESS [None]
